FAERS Safety Report 13235111 (Version 3)
Quarter: 2017Q2

REPORT INFORMATION
  Report Type: Spontaneous
  Country: US (occurrence: US)
  Receive Date: 20170215
  Receipt Date: 20170525
  Transmission Date: 20170830
  Serious: No
  Sender: FDA-Public Use
  Company Number: US-PFIZER INC-2017063355

PATIENT
  Age: 8 Decade
  Sex: Female
  Weight: 64 kg

DRUGS (6)
  1. LEVOTHYROXINE SODIUM. [Suspect]
     Active Substance: LEVOTHYROXINE SODIUM
     Dosage: UNK
     Dates: start: 2016
  2. POTASSIUM CHLORIDE. [Suspect]
     Active Substance: POTASSIUM CHLORIDE
     Dosage: UNK
     Dates: start: 2016
  3. SILODOSIN [Suspect]
     Active Substance: SILODOSIN
     Dosage: UNK
     Dates: start: 2016
  4. POTASSIUM CHLORIDE. [Suspect]
     Active Substance: POTASSIUM CHLORIDE
     Indication: HYPOKALAEMIA
     Dosage: 10 MG, UNK
     Dates: start: 1986
  5. DILTIAZEM HCL EXTE-REL [Suspect]
     Active Substance: DILTIAZEM HYDROCHLORIDE
     Dosage: 20 MG, ONCE DAILY
     Route: 048
     Dates: start: 20170204, end: 20170204
  6. ATORVASTATIN CALCIUM. [Suspect]
     Active Substance: ATORVASTATIN CALCIUM
     Dosage: UNK
     Dates: start: 2016

REACTIONS (1)
  - Hypersensitivity [Unknown]
